FAERS Safety Report 20583126 (Version 1)
Quarter: 2022Q1

REPORT INFORMATION
  Report Type: Spontaneous
  Country: US (occurrence: US)
  Receive Date: 20220311
  Receipt Date: 20220311
  Transmission Date: 20220423
  Serious: Yes (Other)
  Sender: FDA-Public Use
  Company Number: US-MYLANLABS-2021M1084782

PATIENT
  Age: 8 Year
  Sex: Female
  Weight: 34 kg

DRUGS (4)
  1. ACETAZOLAMIDE [Suspect]
     Active Substance: ACETAZOLAMIDE
     Indication: Nystagmus
     Dosage: UNK
     Route: 065
  2. ACETAZOLAMIDE [Suspect]
     Active Substance: ACETAZOLAMIDE
     Indication: Ataxia
  3. DALFAMPRIDINE [Suspect]
     Active Substance: DALFAMPRIDINE
     Indication: Hereditary ataxia
     Dosage: 10 MILLIGRAM, BID, 0.3MG/KG
     Route: 065
  4. DALFAMPRIDINE [Suspect]
     Active Substance: DALFAMPRIDINE
     Dosage: 10 MILLIGRAM, QD (DOSE DECREASED)
     Route: 065

REACTIONS (3)
  - Drug ineffective [Unknown]
  - Dizziness [Recovering/Resolving]
  - Off label use [Unknown]
